FAERS Safety Report 7328415-2 (Version None)
Quarter: 2011Q1

REPORT INFORMATION
  Report Type: 
  Country: None (occurrence: None)
  Receive Date: 20110223
  Receipt Date: 20110214
  Transmission Date: 20110831
  Serious: Yes (Hospitalization, Other)
  Sender: FDA-Public Use
  Company Number: TPA2010A03859

PATIENT
  Age: 48 Year
  Sex: Female
  Weight: 133 kg

DRUGS (7)
  1. LEVOTHYROXINE SODIUM [Concomitant]
  2. HYDROCHLOROTHIAZIDE [Concomitant]
  3. PREVACID [Suspect]
     Indication: PEPTIC ULCER
     Dosage: 30 MG, 2 IN 1 D
  4. PREVACID [Suspect]
     Indication: HELICOBACTER INFECTION
     Dosage: 30 MG, 2 IN 1 D
  5. VITAMIN D3 (COLECALICFEROL) [Concomitant]
  6. CALCIUM CARBONATE [Suspect]
     Dosage: 1500 MG, 2 IN 1 D
  7. NIFEDIPINE [Concomitant]

REACTIONS (11)
  - HYPOPARATHYROIDISM [None]
  - CONVULSION [None]
  - LARYNGOSPASM [None]
  - PARAESTHESIA [None]
  - TETANY [None]
  - BRONCHOSPASM [None]
  - ELECTROCARDIOGRAM QT PROLONGED [None]
  - HYPOAESTHESIA [None]
  - HYPERREFLEXIA [None]
  - BLOOD CALCIUM DECREASED [None]
  - BLOOD PARATHYROID HORMONE DECREASED [None]
